FAERS Safety Report 7526404-6 (Version None)
Quarter: 2011Q2

REPORT INFORMATION
  Report Type: 
  Country: None (occurrence: None)
  Receive Date: 20110603
  Receipt Date: 20110603
  Transmission Date: 20111010
  Serious: Yes (Other)
  Sender: FDA-Public Use
  Company Number: None

PATIENT
  Age: 46 Year
  Sex: Female
  Weight: 122.4712 kg

DRUGS (3)
  1. INFED [Suspect]
     Indication: IRON DEFICIENCY ANAEMIA
     Dosage: TEST DOSE 50MG
     Dates: start: 20110601
  2. BENADRYL [Concomitant]
  3. TYLENOL-500 [Concomitant]

REACTIONS (1)
  - PRURITUS [None]
